FAERS Safety Report 9924273 (Version 2)
Quarter: 2014Q1

REPORT INFORMATION
  Report Type: Spontaneous
  Country: CA (occurrence: CA)
  Receive Date: 20140226
  Receipt Date: 20140226
  Transmission Date: 20141002
  Serious: Yes (Other)
  Sender: FDA-Public Use
  Company Number: CA-BRISTOL-MYERS SQUIBB COMPANY-20091187

PATIENT
  Age: 88 Year
  Sex: Male
  Weight: 62.58 kg

DRUGS (2)
  1. ELIQUIS [Suspect]
     Dosage: 1DF: 2.5 UNIT NOS
     Route: 048
     Dates: start: 20140109, end: 20140111
  2. KEFLEX [Concomitant]
     Indication: CELLULITIS
     Dosage: 1DF: 500 UNIT NOS
     Dates: start: 20131230, end: 20140105

REACTIONS (3)
  - Rash generalised [Recovered/Resolved]
  - Urticaria [Recovered/Resolved]
  - Swelling [Recovered/Resolved]
